FAERS Safety Report 14874113 (Version 1)
Quarter: 2018Q2

REPORT INFORMATION
  Report Type: Report from Study
  Country: US (occurrence: US)
  Receive Date: 20180510
  Receipt Date: 20180510
  Transmission Date: 20180711
  Serious: Yes (Other)
  Sender: FDA-Public Use
  Company Number: US-ASTRAZENECA-2018SE60959

PATIENT
  Age: 48 Year
  Sex: Female

DRUGS (1)
  1. FASENRA [Suspect]
     Active Substance: BENRALIZUMAB
     Indication: PULMONARY EOSINOPHILIA
     Route: 058
     Dates: start: 20180405

REACTIONS (1)
  - Condition aggravated [Unknown]
